FAERS Safety Report 4919770-9 (Version None)
Quarter: 2006Q1

REPORT INFORMATION
  Report Type: 
  Country: None (occurrence: None)
  Receive Date: 20060216
  Receipt Date: 20060208
  Transmission Date: 20060701
  Serious: Yes (Hospitalization)
  Sender: FDA-Public Use
  Company Number: 200610118BVD

PATIENT
  Age: 55 Year
  Sex: Male
  Weight: 94 kg

DRUGS (10)
  1. SORAFENIB [Suspect]
     Indication: RENAL CELL CARCINOMA STAGE UNSPECIFIED
     Dosage: SEE IMAGE
     Route: 048
     Dates: start: 20051217, end: 20060112
  2. SORAFENIB [Suspect]
     Indication: RENAL CELL CARCINOMA STAGE UNSPECIFIED
     Dosage: SEE IMAGE
     Route: 048
     Dates: start: 20060117
  3. NOVONORM [Concomitant]
  4. RISOPROLOL [Concomitant]
  5. ALLOPURINOL [Concomitant]
  6. EFEROX [Concomitant]
  7. FRAXIPARIN [Concomitant]
  8. SALBUTAMOL [Concomitant]
  9. ATROVENT [Concomitant]
  10. IRON SUPPLEMENT [Concomitant]

REACTIONS (13)
  - ASTHENIA [None]
  - DISEASE PROGRESSION [None]
  - DYSPNOEA [None]
  - GASTRITIS [None]
  - GASTROOESOPHAGEAL REFLUX DISEASE [None]
  - GENERAL PHYSICAL HEALTH DETERIORATION [None]
  - GRAND MAL CONVULSION [None]
  - HAEMOGLOBIN DECREASED [None]
  - METASTASES TO ABDOMINAL CAVITY [None]
  - METASTASES TO LUNG [None]
  - METASTASES TO LYMPH NODES [None]
  - OESOPHAGITIS [None]
  - PLEURAL EFFUSION [None]
